FAERS Safety Report 13982168 (Version 4)
Quarter: 2021Q3

REPORT INFORMATION
  Report Type: Report from Study
  Country: JP (occurrence: JP)
  Receive Date: 20170918
  Receipt Date: 20210806
  Transmission Date: 20211014
  Serious: Yes (Hospitalization)
  Sender: FDA-Public Use
  Company Number: PHJP2017JP028267

PATIENT
  Age: 64 Year
  Sex: Female

DRUGS (7)
  1. FLUORESCEIN [Concomitant]
     Active Substance: FLUORESCEIN
     Indication: FUNDUS AUTOFLUORESCENCE
     Dosage: UNK
     Route: 065
     Dates: start: 20170306
  2. MEKINIST [Suspect]
     Active Substance: TRAMETINIB DIMETHYL SULFOXIDE
     Indication: BRAF GENE MUTATION
     Dosage: 1 MG, QD
     Route: 048
     Dates: start: 20170510, end: 20170605
  3. TAFINLAR [Suspect]
     Active Substance: DABRAFENIB MESYLATE
     Indication: MALIGNANT MELANOMA STAGE IV
     Dosage: 300 MG
     Route: 048
     Dates: start: 20161108, end: 20170307
  4. TAFINLAR [Suspect]
     Active Substance: DABRAFENIB MESYLATE
     Indication: BRAF GENE MUTATION
     Dosage: 150 MG, QD
     Route: 048
     Dates: start: 20170510, end: 20170605
  5. TAFINLAR [Suspect]
     Active Substance: DABRAFENIB MESYLATE
     Dosage: 200 MG
     Route: 048
     Dates: start: 20170712, end: 20170713
  6. MEKINIST [Suspect]
     Active Substance: TRAMETINIB DIMETHYL SULFOXIDE
     Indication: MALIGNANT MELANOMA STAGE IV
     Dosage: 2 MG, UNK
     Route: 048
     Dates: start: 20161108, end: 20170307
  7. MEKINIST [Suspect]
     Active Substance: TRAMETINIB DIMETHYL SULFOXIDE
     Dosage: 1.5 MG
     Route: 048
     Dates: start: 20170712, end: 20170713

REACTIONS (11)
  - Serous retinal detachment [Recovered/Resolved]
  - Keratic precipitates [Unknown]
  - Optic disc disorder [Unknown]
  - Iridocyclitis [Recovered/Resolved]
  - Vitreous floaters [Unknown]
  - Uveitis [Recovering/Resolving]
  - Visual acuity reduced [Recovered/Resolved]
  - Vision blurred [Recovered/Resolved]
  - Papilloedema [Recovered/Resolved]
  - Chorioretinal atrophy [Recovering/Resolving]
  - Pigmentation disorder [Unknown]

NARRATIVE: CASE EVENT DATE: 201702
